FAERS Safety Report 9471107 (Version 2)
Quarter: 2013Q4

REPORT INFORMATION
  Report Type: Spontaneous
  Country: DE (occurrence: DE)
  Receive Date: 20130822
  Receipt Date: 20131031
  Transmission Date: 20140711
  Serious: Yes (Other)
  Sender: FDA-Public Use
  Company Number: DE-GALDERMA-DE13002589

PATIENT
  Age: 12 Year
  Sex: Female

DRUGS (1)
  1. EPIDUO [Suspect]
     Indication: ACNE
     Dosage: 0.1%-2.5%
     Route: 061
     Dates: start: 20130813

REACTIONS (3)
  - Eyelid oedema [Recovered/Resolved]
  - Dermatitis contact [Recovered/Resolved]
  - Swelling face [Recovered/Resolved]
